FAERS Safety Report 4933712-1 (Version None)
Quarter: 2006Q1

REPORT INFORMATION
  Report Type: 
  Country: None (occurrence: None)
  Receive Date: 20060126
  Receipt Date: 20051024
  Transmission Date: 20060701
  Serious: Yes (Other)
  Sender: FDA-Public Use
  Company Number: 21796

PATIENT
  Age: 2 Year
  Sex: Female

DRUGS (1)
  1. CLINDAMYCIN PHOSPHATE [Suspect]
     Indication: OSTEOMYELITIS
     Dosage: 150MG/Q 8HRS/IV
     Route: 042
     Dates: start: 20050922, end: 20051003

REACTIONS (1)
  - INFECTION [None]
